FAERS Safety Report 7494431-3 (Version None)
Quarter: 2011Q2

REPORT INFORMATION
  Report Type: 
  Country: None (occurrence: None)
  Receive Date: 20110520
  Receipt Date: 20110513
  Transmission Date: 20111010
  Serious: Yes (Other)
  Sender: FDA-Public Use
  Company Number: US-ROCHE-777737

PATIENT
  Age: 59 Year
  Sex: Male

DRUGS (2)
  1. COPEGUS [Suspect]
     Indication: HEPATITIS C
     Dosage: 02 DOSES IN AM AND 03 IN PM
     Route: 048
     Dates: start: 20070614
  2. PEGASYS [Suspect]
     Indication: HEPATITIS C
     Dosage: FORM: INJECTION
     Route: 058
     Dates: start: 20070614

REACTIONS (3)
  - TREATMENT FAILURE [None]
  - ANAEMIA [None]
  - EXPOSURE TO COMMUNICABLE DISEASE [None]
